FAERS Safety Report 8943532 (Version 1)
Quarter: 2012Q4

REPORT INFORMATION
  Report Type: 
  Country: US (occurrence: US)
  Receive Date: 20121204
  Receipt Date: 20121204
  Transmission Date: 20130627
  Serious: Yes (Other)
  Sender: FDA-Public Use
  Company Number: US-PFIZER INC-2012299423

PATIENT
  Sex: Female

DRUGS (1)
  1. MEDROXYPROGESTERONE ACETATE [Suspect]
     Indication: CONTRACEPTION
     Dosage: 150 mg/ml, UNK

REACTIONS (4)
  - Product quality issue [Unknown]
  - Hypersensitivity [Unknown]
  - Dyspnoea [Unknown]
  - Urticaria [Unknown]
